FAERS Safety Report 5239123-6 (Version None)
Quarter: 2007Q1

REPORT INFORMATION
  Report Type: 
  Country: None (occurrence: None)
  Receive Date: 20070209
  Receipt Date: 20070125
  Transmission Date: 20070707
  Serious: Yes (Other)
  Sender: FDA-Public Use
  Company Number: GXKR2007JP01113

PATIENT
  Age: 68 Year
  Sex: Male

DRUGS (1)
  1. PREDNISOLONE [Suspect]
     Indication: CHRONIC SINUSITIS
     Dosage: 10 MG/DAY, ORAL
     Route: 048

REACTIONS (5)
  - ANGIOEDEMA [None]
  - ANOREXIA [None]
  - DYSPHORIA [None]
  - SCLERITIS [None]
  - WEIGHT DECREASED [None]
